FAERS Safety Report 7672461-6 (Version None)
Quarter: 2011Q3

REPORT INFORMATION
  Report Type: 
  Country: None (occurrence: None)
  Receive Date: 20110804
  Receipt Date: 20110722
  Transmission Date: 20111222
  Serious: Yes (Hospitalization)
  Sender: FDA-Public Use
  Company Number: 1000022008

PATIENT
  Age: 80 Year
  Sex: Female

DRUGS (13)
  1. FORLAX (MACROGOL) (MACROGOL) [Concomitant]
  2. MEMANTINE HYDROCHLORIDE [Suspect]
     Dosage: 5 MG (5 MG, 1 IN 1 D), ORAL
     Route: 048
     Dates: start: 20110514, end: 20110520
  3. OXYCONTIN (OXYCODONE HYDROCHLORIDE) (OXYCODONE HYDROCHLORIDE) [Concomitant]
  4. DIFFU K (POTASSIUM CHLORIDE) (POTASSIUM CHLORIDE) [Concomitant]
  5. LOVENOX (ENOXAPARIN SODIUM ) (ENOXAPARIN SODIUM) [Concomitant]
  6. MORPHINE [Concomitant]
  7. RENITEC (ENALAPRIL MALEATE) (ENALAPRIL MALEATE) [Concomitant]
  8. NEXIUM [Concomitant]
  9. FLAGYL [Suspect]
     Indication: CLOSTRIDIAL INFECTION
     Dosage: (3 IN 1 D), INTRAVENOUS
     Route: 042
     Dates: start: 20110516
  10. LOXEN (NICARDIPINE HYDROCHLORIDE) (NICARDIPINE HYDROCHLORIDE) [Concomitant]
  11. TOPALGIC (TRAMADOL HYDROCHLORIDE) (TRAMADOL HYDROCHLORIDE) [Concomitant]
  12. MEMANTINE HYDROCHLORIDE [Suspect]
     Dosage: 10 MG (5 MG, 2 IN 1 D), ORAL
     Route: 048
     Dates: start: 20110524
  13. LYRICA [Suspect]
     Dosage: 50 MG (25 MG, 2 IN 1 D)
     Dates: start: 20110516

REACTIONS (10)
  - CONDITION AGGRAVATED [None]
  - CHOLESTASIS [None]
  - COGNITIVE DISORDER [None]
  - POSTOPERATIVE WOUND INFECTION [None]
  - MALNUTRITION [None]
  - DIABETES MELLITUS [None]
  - BLOOD PRESSURE SYSTOLIC INCREASED [None]
  - NORMOCHROMIC NORMOCYTIC ANAEMIA [None]
  - IMPAIRED HEALING [None]
  - MACROANGIOPATHY [None]
